FAERS Safety Report 7914112-9 (Version None)
Quarter: 2011Q4

REPORT INFORMATION
  Report Type: 
  Country: None (occurrence: None)
  Receive Date: 20111114
  Receipt Date: 20111114
  Transmission Date: 20120403
  Serious: Yes (Other)
  Sender: FDA-Public Use
  Company Number: None

PATIENT
  Sex: Female
  Weight: 60.782 kg

DRUGS (2)
  1. PAROXETINE HCL [Suspect]
     Indication: DEPRESSION
     Dosage: 10 MG 1QD PO
     Route: 048
     Dates: start: 20100201, end: 20110501
  2. PAROXETINE HCL [Suspect]
     Indication: DEPRESSION
     Dosage: 10 MG 1QD PO
     Route: 048
     Dates: start: 20081001, end: 20090101

REACTIONS (6)
  - DISTURBANCE IN ATTENTION [None]
  - NAUSEA [None]
  - DISORIENTATION [None]
  - DIZZINESS [None]
  - ABDOMINAL PAIN [None]
  - DRUG INEFFECTIVE [None]
